FAERS Safety Report 4287130-2 (Version None)
Quarter: 2004Q1

REPORT INFORMATION
  Report Type: 
  Country: None (occurrence: None)
  Receive Date: 20040126
  Receipt Date: 20030829
  Transmission Date: 20041129
  Serious: No
  Sender: FDA-Public Use
  Company Number: USA030945920

PATIENT
  Age: 55 Year
  Sex: Female

DRUGS (8)
  1. FORTEO [Suspect]
     Indication: OSTEOPOROSIS
     Dosage: 20 UG/DAY
     Dates: start: 20030801
  2. CITRACAL (CALCIUM CITRATE) [Concomitant]
  3. FUROSEMIDE [Concomitant]
  4. FOSAMAX [Concomitant]
  5. MOTRIN [Concomitant]
  6. ASPIRIN [Concomitant]
  7. ANTIBIOTIC [Concomitant]
  8. WATER PILLS [Concomitant]

REACTIONS (3)
  - DYSPHAGIA [None]
  - NAUSEA [None]
  - PHARYNGOLARYNGEAL PAIN [None]
